FAERS Safety Report 5730046-2 (Version None)
Quarter: 2008Q2

REPORT INFORMATION
  Report Type: 
  Country: None (occurrence: None)
  Receive Date: 20080507
  Receipt Date: 20080429
  Transmission Date: 20081010
  Serious: Yes (Hospitalization, Other)
  Sender: FDA-Public Use
  Company Number: FR-ELI_LILLY_AND_COMPANY-FR200804007054

PATIENT
  Sex: Female

DRUGS (7)
  1. ZYPREXA [Suspect]
     Indication: PSYCHOTIC DISORDER
     Dosage: 5 MG, 2/D
     Route: 048
     Dates: start: 20061010, end: 20070424
  2. MEPRONIZINE [Concomitant]
     Dosage: 1 D/F, DAILY (1/D)
     Route: 048
     Dates: start: 20061010, end: 20070424
  3. FORLAX [Concomitant]
     Dosage: 10 G, 2/D
     Route: 048
     Dates: start: 20061010
  4. PARKINANE [Concomitant]
     Dosage: 5 MG, DAILY (1/D)
     Route: 048
     Dates: start: 20061010
  5. TERCIAN [Interacting]
     Dosage: 25 MG, 3/D
     Route: 048
     Dates: start: 20061010, end: 20070424
  6. DEPAKENE [Interacting]
     Dosage: 200 MG, 2/D
     Route: 048
     Dates: start: 20061010, end: 20070401
  7. DEPAKENE [Interacting]
     Dosage: 1 G, DAILY (1/D)
     Route: 048
     Dates: start: 20070401

REACTIONS (4)
  - BRAIN OEDEMA [None]
  - DRUG INTERACTION [None]
  - FAECAL VOMITING [None]
  - STATUS EPILEPTICUS [None]
